FAERS Safety Report 5573518-6 (Version None)
Quarter: 2007Q4

REPORT INFORMATION
  Report Type: 
  Country: None (occurrence: None)
  Receive Date: 20071220
  Receipt Date: 20071220
  Transmission Date: 20080405
  Serious: Yes (Other)
  Sender: FDA-Public Use
  Company Number: None

PATIENT
  Sex: Female

DRUGS (10)
  1. REVLIMID [Suspect]
     Indication: MULTIPLE MYELOMA
     Dosage: 10MG  DAILY 21D/28D  PO
     Route: 048
  2. PREDNISONE TAB [Concomitant]
  3. MELPHALAN [Concomitant]
  4. DETROL [Concomitant]
  5. LISINOPRIL [Concomitant]
  6. HYDROCHLOROTHIAZIDE [Concomitant]
  7. MORPHINE SULFATE [Concomitant]
  8. FUROSEMIDE [Concomitant]
  9. NITROGLYCERIN SL [Concomitant]
  10. PREMARIN [Concomitant]

REACTIONS (4)
  - NEUTROPENIA [None]
  - RECTAL HAEMORRHAGE [None]
  - THROMBOCYTOPENIA [None]
  - URINARY TRACT INFECTION [None]
